FAERS Safety Report 10389255 (Version 6)
Quarter: 2016Q3

REPORT INFORMATION
  Report Type: Spontaneous
  Country: BR (occurrence: BR)
  Receive Date: 20140818
  Receipt Date: 20160808
  Transmission Date: 20161109
  Serious: Yes (Other)
  Sender: FDA-Public Use
  Company Number: BR-ROCHE-1176655

PATIENT
  Age: 80 Year
  Sex: Female
  Weight: 85 kg

DRUGS (7)
  1. CLONAZEPAM. [Suspect]
     Active Substance: CLONAZEPAM
     Indication: PAIN
  2. RIVOTRIL [Suspect]
     Active Substance: CLONAZEPAM
     Indication: SLEEP DISORDER THERAPY
     Dosage: AT NIGHT
     Route: 065
     Dates: end: 1996
  3. RIVOTRIL [Interacting]
     Active Substance: CLONAZEPAM
     Indication: ANXIETY
  4. SIMVASTATIN. [Interacting]
     Active Substance: SIMVASTATIN
     Indication: BLOOD CHOLESTEROL ABNORMAL
     Dosage: AT NIGHT
     Route: 065
  5. CLONAZEPAM. [Suspect]
     Active Substance: CLONAZEPAM
     Indication: INSOMNIA
     Route: 065
  6. SYNTHROID [Interacting]
     Active Substance: LEVOTHYROXINE SODIUM
     Indication: THYROID DISORDER
     Dosage: IN FASTING
     Route: 065
  7. RIVOTRIL [Interacting]
     Active Substance: CLONAZEPAM
     Indication: PAIN

REACTIONS (30)
  - Blindness [Not Recovered/Not Resolved]
  - Oral pain [Not Recovered/Not Resolved]
  - Oral discomfort [Not Recovered/Not Resolved]
  - Oropharyngeal pain [Not Recovered/Not Resolved]
  - Retinal disorder [Not Recovered/Not Resolved]
  - Glaucoma [Not Recovered/Not Resolved]
  - Breast cancer [Unknown]
  - Breast injury [Unknown]
  - Wound [Not Recovered/Not Resolved]
  - Eye irritation [Unknown]
  - Headache [Unknown]
  - Visual acuity reduced [Unknown]
  - Thyroid disorder [Unknown]
  - Drug dose omission [Unknown]
  - Abnormal behaviour [Unknown]
  - Drug ineffective [Unknown]
  - Dizziness [Not Recovered/Not Resolved]
  - Dysgeusia [Unknown]
  - Glaucoma [Unknown]
  - Hypertension [Not Recovered/Not Resolved]
  - Visual impairment [Not Recovered/Not Resolved]
  - Dysstasia [Not Recovered/Not Resolved]
  - Eye pain [Not Recovered/Not Resolved]
  - Suicidal ideation [Unknown]
  - Stomatitis [Not Recovered/Not Resolved]
  - Drug interaction [Unknown]
  - Diabetes mellitus [Not Recovered/Not Resolved]
  - Headache [Not Recovered/Not Resolved]
  - Fall [Unknown]
  - Blood cholesterol abnormal [Unknown]

NARRATIVE: CASE EVENT DATE: 1996
